FAERS Safety Report 7506922-7 (Version None)
Quarter: 2011Q2

REPORT INFORMATION
  Report Type: 
  Country: None (occurrence: None)
  Receive Date: 20110526
  Receipt Date: 20110524
  Transmission Date: 20111010
  Serious: Yes (Life-Threatening, Hospitalization, Disabling, Other)
  Sender: FDA-Public Use
  Company Number: PHHO2009BE14628

PATIENT
  Sex: Male
  Weight: 92 kg

DRUGS (5)
  1. EVEROLIMUS [Suspect]
     Indication: LIVER TRANSPLANT
     Dosage: 4.5 MG, BID
     Route: 048
     Dates: start: 20090814, end: 20091221
  2. MEDROL [Concomitant]
     Dosage: UNK
     Dates: end: 20091211
  3. FLUCONAZOLE [Suspect]
  4. EBASTINE [Suspect]
  5. TACROLIMUS [Suspect]
     Indication: LIVER TRANSPLANT
     Dosage: UNK
     Route: 048

REACTIONS (11)
  - LUNG INFILTRATION [None]
  - PYREXIA [None]
  - ENDOSCOPIC RETROGRADE CHOLANGIOPANCREATOGRAPHY [None]
  - CHOLANGITIS [None]
  - RHABDOMYOLYSIS [None]
  - LIVER FUNCTION TEST ABNORMAL [None]
  - BILE DUCT STENOSIS [None]
  - DYSPNOEA [None]
  - LIVER TRANSPLANT REJECTION [None]
  - BLOOD CREATINE PHOSPHOKINASE INCREASED [None]
  - FLUID OVERLOAD [None]
